FAERS Safety Report 5764122-5 (Version None)
Quarter: 2008Q2

REPORT INFORMATION
  Report Type: 
  Country: None (occurrence: None)
  Receive Date: 20080604
  Receipt Date: 20080521
  Transmission Date: 20081010
  Serious: Yes (Hospitalization)
  Sender: FDA-Public Use
  Company Number: 2008BI012440

PATIENT
  Age: 53 Year
  Sex: Female
  Weight: 76.2043 kg

DRUGS (2)
  1. AVONEX [Suspect]
     Indication: MULTIPLE SCLEROSIS
     Dosage: 30 UG; QW; IM
     Route: 030
     Dates: start: 20010101, end: 20080520
  2. CELEXA [Concomitant]

REACTIONS (10)
  - CHEST PAIN [None]
  - DYSPNOEA [None]
  - FOOD ALLERGY [None]
  - OEDEMA MOUTH [None]
  - PAIN [None]
  - PRURITUS GENERALISED [None]
  - RASH GENERALISED [None]
  - SWELLING FACE [None]
  - THYROID DISORDER [None]
  - WEIGHT INCREASED [None]
